FAERS Safety Report 9886556 (Version 1)
Quarter: 2014Q1

REPORT INFORMATION
  Report Type: Spontaneous
  Country: US (occurrence: US)
  Receive Date: 20140210
  Receipt Date: 20140210
  Transmission Date: 20141002
  Serious: Yes (Life-Threatening, Other)
  Sender: FDA-Public Use
  Company Number: US-WATSON-2014-02734

PATIENT
  Age: 35 Year
  Sex: Female

DRUGS (4)
  1. HYDROMORPHONE HYDROCHLORIDE (WATSON LABORATORIES) (HYDROMORPHONE HYDROCHLORIDE) INJECTION, 10MG/ML [Suspect]
     Indication: ANALGESIC THERAPY
     Dosage: UNK, UNKNOWN
     Route: 065
  2. DIPHENHYDRAMINE (WATSON LABORATORIES) [Suspect]
     Indication: DRUG HYPERSENSITIVITY
     Dosage: SEVERAL DOSES
     Route: 065
  3. KETOROLAC (WATSON LABORATORIES) [Suspect]
     Indication: ANALGESIC THERAPY
     Dosage: UNKNOWN
     Route: 065
  4. DEXMEDETOMIDINE [Concomitant]
     Indication: ANALGESIC THERAPY
     Dosage: UNKNOWN
     Route: 065

REACTIONS (3)
  - Postoperative ileus [Recovered/Resolved]
  - Abdominal compartment syndrome [Recovered/Resolved]
  - Rash [Recovered/Resolved]
